FAERS Safety Report 9376922 (Version 1)
Quarter: 2013Q3

REPORT INFORMATION
  Report Type: Report from Study
  Country: CA (occurrence: CA)
  Receive Date: 20130701
  Receipt Date: 20130701
  Transmission Date: 20140515
  Serious: Yes (Other)
  Sender: FDA-Public Use
  Company Number: PHHY2013CA067352

PATIENT
  Sex: Female

DRUGS (4)
  1. ACLASTA [Suspect]
     Indication: OSTEOPOROSIS
     Dosage: UNK
     Route: 042
     Dates: start: 20100426
  2. ACLASTA [Suspect]
     Dosage: UNK
     Route: 042
     Dates: start: 20110426
  3. ACLASTA [Suspect]
     Dosage: UNK
     Route: 042
     Dates: start: 20120420
  4. ACLASTA [Suspect]
     Dosage: UNK
     Route: 042
     Dates: start: 20130613

REACTIONS (2)
  - Fall [Unknown]
  - General physical health deterioration [Unknown]
